FAERS Safety Report 16895435 (Version 1)
Quarter: 2019Q4

REPORT INFORMATION
  Report Type: Spontaneous
  Country: GB (occurrence: GB)
  Receive Date: 20191008
  Receipt Date: 20191008
  Transmission Date: 20200122
  Serious: Yes (Other)
  Sender: FDA-Public Use
  Company Number: GB-MYLANLABS-2019M1092860

PATIENT
  Age: 30 Year
  Sex: Male

DRUGS (1)
  1. SERTRALINE [Suspect]
     Active Substance: SERTRALINE HYDROCHLORIDE
     Indication: PRODUCT USED FOR UNKNOWN INDICATION
     Dosage: 50 MG, 1X/DAY
     Dates: start: 20190429

REACTIONS (9)
  - Headache [Unknown]
  - Dry mouth [Unknown]
  - Weight decreased [Unknown]
  - Urinary retention [Unknown]
  - Insomnia [Unknown]
  - Somnolence [Unknown]
  - Hyperhidrosis [Unknown]
  - Anxiety [Unknown]
  - Nausea [Unknown]
